FAERS Safety Report 9448170 (Version 1)
Quarter: 2013Q3

REPORT INFORMATION
  Report Type: Spontaneous
  Country: US (occurrence: US)
  Receive Date: 20130808
  Receipt Date: 20130808
  Transmission Date: 20140515
  Serious: Yes (Hospitalization, Other)
  Sender: FDA-Public Use
  Company Number: US-FRI-1000047495

PATIENT
  Sex: Female
  Weight: 46 kg

DRUGS (1)
  1. TEFLARO [Suspect]
     Indication: CELLULITIS
     Dosage: 1200 MG
     Route: 042
     Dates: start: 20130101, end: 20130129

REACTIONS (4)
  - Fall [Recovered/Resolved]
  - Pubis fracture [Recovered/Resolved]
  - Encephalitis [Unknown]
  - Pyrexia [Recovered/Resolved]
